FAERS Safety Report 10494164 (Version 1)
Quarter: 2014Q4

REPORT INFORMATION
  Report Type: Spontaneous
  Country: US (occurrence: None)
  Receive Date: 20141002
  Receipt Date: 20141002
  Transmission Date: 20150528
  Serious: Yes (Disabling)
  Sender: FDA-Public Use
  Company Number: None

PATIENT
  Age: 66 Year
  Sex: Female
  Weight: 74.84 kg

DRUGS (1)
  1. METFORMIN [Suspect]
     Active Substance: METFORMIN HYDROCHLORIDE
     Indication: BLOOD GLUCOSE ABNORMAL
     Dates: start: 20130401, end: 20140930

REACTIONS (10)
  - Pollakiuria [None]
  - Blood glucose increased [None]
  - Product quality issue [None]
  - Vision blurred [None]
  - Device issue [None]
  - Visual impairment [None]
  - Somnolence [None]
  - Micturition urgency [None]
  - Intentional product use issue [None]
  - Urinary incontinence [None]

NARRATIVE: CASE EVENT DATE: 20140920
